FAERS Safety Report 5894149-4 (Version None)
Quarter: 2008Q3

REPORT INFORMATION
  Report Type: 
  Country: None (occurrence: None)
  Receive Date: 20080923
  Receipt Date: 20080201
  Transmission Date: 20090109
  Serious: No
  Sender: FDA-Public Use
  Company Number: US-ASTRAZENECA-2008UW02340

PATIENT
  Age: 59 Year
  Sex: Male

DRUGS (7)
  1. SEROQUEL [Suspect]
     Indication: BIPOLAR DISORDER
     Dates: start: 20000101
  2. SEROQUEL [Suspect]
     Route: 048
     Dates: start: 20070101, end: 20071201
  3. DEPAKOTE [Concomitant]
  4. KLONOPIN [Concomitant]
  5. CORGARD [Concomitant]
  6. HYDROCHLOROTHIAZIDE [Concomitant]
  7. DIHYDROPERIDINE [Concomitant]
     Indication: TREMOR

REACTIONS (3)
  - ASTHENIA [None]
  - ILL-DEFINED DISORDER [None]
  - MUSCLE SPASMS [None]
